FAERS Safety Report 15598375 (Version 1)
Quarter: 2018Q4

REPORT INFORMATION
  Report Type: Spontaneous
  Country: BR (occurrence: BR)
  Receive Date: 20181108
  Receipt Date: 20181108
  Transmission Date: 20190205
  Serious: Yes (Other)
  Sender: FDA-Public Use
  Company Number: BR-SAKK-2018SA303191AA

PATIENT
  Age: 25 Year
  Sex: Female

DRUGS (5)
  1. WARFARIN SODIUM. [Suspect]
     Active Substance: WARFARIN SODIUM
     Indication: ANTICOAGULANT THERAPY
     Dosage: UNK
  2. ENOXAPARIN SODIUM. [Suspect]
     Active Substance: ENOXAPARIN SODIUM
     Indication: ANTICOAGULANT THERAPY
  3. ACETYLSALICYLIC ACID [Suspect]
     Active Substance: ASPIRIN
     Indication: PROPHYLAXIS
     Dosage: 100 MG, QD
  4. ENOXAPARIN SODIUM. [Suspect]
     Active Substance: ENOXAPARIN SODIUM
     Indication: PROPHYLAXIS
     Dosage: 40 MG, QD
     Route: 058
  5. ACETYLSALICYLIC ACID [Suspect]
     Active Substance: ASPIRIN
     Indication: ANTICOAGULANT THERAPY
     Dosage: UNK

REACTIONS (20)
  - Liver disorder [Unknown]
  - Hepatic enzyme increased [Recovered/Resolved]
  - Foetal death [Unknown]
  - Thrombocytopenia [Unknown]
  - Ischaemia [Unknown]
  - Hypertension [Recovered/Resolved]
  - Anaemia [Recovered/Resolved]
  - Proteinuria [Recovered/Resolved]
  - Exposure during pregnancy [Unknown]
  - HELLP syndrome [Unknown]
  - Livedo reticularis [Unknown]
  - Blood lactate dehydrogenase increased [Recovered/Resolved]
  - Necrosis [Unknown]
  - Hepatic infarction [Unknown]
  - Hepatomegaly [Unknown]
  - Haemolysis [Unknown]
  - Abdominal pain [Unknown]
  - Retroperitoneal haemorrhage [Unknown]
  - Transaminases increased [Recovered/Resolved]
  - Abortion induced [Unknown]
